FAERS Safety Report 20741586 (Version 4)
Quarter: 2022Q3

REPORT INFORMATION
  Report Type: Report from Study
  Country: CN (occurrence: CN)
  Receive Date: 20220422
  Receipt Date: 20220729
  Transmission Date: 20221027
  Serious: Yes (Hospitalization)
  Sender: FDA-Public Use
  Company Number: CN-GILEAD-2022-0578910

PATIENT
  Sex: Male
  Weight: 70 kg

DRUGS (11)
  1. BICTEGRAVIR\EMTRICITABINE\TENOFOVIR ALAFENAMIDE [Suspect]
     Active Substance: BICTEGRAVIR\EMTRICITABINE\TENOFOVIR ALAFENAMIDE
     Indication: HIV infection
     Dosage: 1 DOSAGE FORM, QD
     Route: 048
     Dates: start: 20211206
  2. VITAMIN D NOS [Concomitant]
     Active Substance: VITAMIN D NOS
     Indication: Prophylaxis
     Route: 048
     Dates: start: 20211108
  3. BAI LING [CORDYCEPS SINENSIS MYCELIUM] [Concomitant]
     Indication: Chronic kidney disease
     Route: 048
     Dates: start: 20211108
  4. IRBESARTAN [Concomitant]
     Active Substance: IRBESARTAN
     Indication: Coronary artery disease
     Route: 048
     Dates: start: 20211108
  5. ISOSORBIDE MONONITRATE [Concomitant]
     Active Substance: ISOSORBIDE MONONITRATE
     Indication: Coronary artery disease
     Route: 048
     Dates: start: 20210706
  6. ASPIRIN [Concomitant]
     Active Substance: ASPIRIN
     Indication: Coronary artery disease
     Route: 048
     Dates: start: 202107
  7. ROSUVASTATIN CALCIUM [Concomitant]
     Active Substance: ROSUVASTATIN CALCIUM
     Indication: Coronary artery disease
     Route: 048
     Dates: start: 20210706
  8. HYDROCHLOROTHIAZIDE [Concomitant]
     Active Substance: HYDROCHLOROTHIAZIDE
     Indication: Coronary artery disease
     Route: 048
     Dates: start: 20211108
  9. PIPERAZINE BISFERULATE [Concomitant]
     Active Substance: PIPERAZINE BISFERULATE
     Indication: Coronary artery disease
     Route: 048
     Dates: start: 20211108
  10. SODIUM BICARBONATE [Concomitant]
     Active Substance: SODIUM BICARBONATE
     Indication: Coronary artery disease
     Route: 048
     Dates: start: 20210708
  11. LIQUID CALCIUM [CALCIUM] [Concomitant]
     Indication: Prophylaxis
     Route: 048
     Dates: start: 20211108

REACTIONS (2)
  - Coronary artery disease [Not Recovered/Not Resolved]
  - Renal failure [Recovered/Resolved]

NARRATIVE: CASE EVENT DATE: 20220201
